FAERS Safety Report 9684820 (Version 3)
Quarter: 2014Q3

REPORT INFORMATION
  Report Type: Spontaneous
  Country: CA (occurrence: CA)
  Receive Date: 20131112
  Receipt Date: 20140718
  Transmission Date: 20150326
  Serious: Yes (Other)
  Sender: FDA-Public Use
  Company Number: PHHY2013CA128774

PATIENT
  Sex: Female

DRUGS (1)
  1. RITALIN [Suspect]
     Active Substance: METHYLPHENIDATE HYDROCHLORIDE
     Dosage: UNK UKN, UNK

REACTIONS (12)
  - Muscular weakness [Unknown]
  - Personality change [Unknown]
  - Tachycardia [Unknown]
  - Apathy [Unknown]
  - Nerve injury [Unknown]
  - Memory impairment [Unknown]
  - Irritability [Unknown]
  - Vision blurred [Unknown]
  - Brain injury [Unknown]
  - Cognitive disorder [Unknown]
  - Anhedonia [Unknown]
  - Depressed mood [Unknown]
